FAERS Safety Report 8417671-5 (Version None)
Quarter: 2012Q2

REPORT INFORMATION
  Report Type: 
  Country: None (occurrence: None)
  Receive Date: 20120606
  Receipt Date: 20120528
  Transmission Date: 20120825
  Serious: Yes (Life-Threatening, Hospitalization)
  Sender: FDA-Public Use
  Company Number: US-BRISTOL-MYERS SQUIBB COMPANY-16636748

PATIENT
  Age: 54 Year
  Sex: Female

DRUGS (3)
  1. LISINOPRIL [Suspect]
  2. SIMVASTATIN [Concomitant]
  3. METFORMIN HCL [Suspect]

REACTIONS (3)
  - HYPOTHERMIA [None]
  - RENAL FAILURE ACUTE [None]
  - LACTIC ACIDOSIS [None]
